FAERS Safety Report 18230751 (Version 1)
Quarter: 2020Q3

REPORT INFORMATION
  Report Type: Spontaneous
  Country: US (occurrence: US)
  Receive Date: 20200904
  Receipt Date: 20200904
  Transmission Date: 20201103
  Serious: Yes (Other)
  Sender: FDA-Public Use
  Company Number: US-PACIRA-202000345

PATIENT
  Sex: Female

DRUGS (6)
  1. GABAPENTIN. [Concomitant]
     Active Substance: GABAPENTIN
     Indication: POSTOPERATIVE ANALGESIA
     Dosage: 300 MG EVERY 8 H
     Route: 065
  2. EXPAREL [Suspect]
     Active Substance: BUPIVACAINE
     Indication: TRANSVERSUS ABDOMINIS PLANE BLOCK
     Dosage: 20 ML ADMIXED WITH 20 ML BUPIVACAINE HCL
  3. KETOROLAC [Concomitant]
     Active Substance: KETOROLAC TROMETHAMINE
     Indication: POSTOPERATIVE ANALGESIA
     Dosage: 15 MG ONCE IMMEDIATELY POSTOPERATIVELY
     Route: 065
  4. ACETAMINOPHEN. [Concomitant]
     Active Substance: ACETAMINOPHEN
     Indication: POSTOPERATIVE ANALGESIA
     Dosage: 650 MG EVERY 6 H
     Route: 065
  5. IBUPROFEN. [Concomitant]
     Active Substance: IBUPROFEN
     Indication: POSTOPERATIVE ANALGESIA
     Dosage: 800 MG EVERY 8 H
     Route: 065
  6. BUPIVACAINE HCL [Suspect]
     Active Substance: BUPIVACAINE HYDROCHLORIDE
     Indication: TRANSVERSUS ABDOMINIS PLANE BLOCK
     Dosage: 20 ML ADMIXED WITH 20 ML LIPOSOMAL BUPIVACAINE

REACTIONS (1)
  - Bladder perforation [Unknown]
